FAERS Safety Report 8493592 (Version 5)
Quarter: 2014Q2

REPORT INFORMATION
  Report Type: Spontaneous
  Country: CA (occurrence: CA)
  Receive Date: 20120404
  Receipt Date: 20140623
  Transmission Date: 20141212
  Serious: Yes (Other)
  Sender: FDA-Public Use
  Company Number: CA-JNJFOC-20120313486

PATIENT
  Age: 69 Year
  Sex: Female
  Weight: 80 kg

DRUGS (3)
  1. REMICADE [Suspect]
     Indication: COLITIS ULCERATIVE
     Route: 042
     Dates: start: 201202, end: 20120313
  2. PREDNISONE [Suspect]
     Indication: COLITIS ULCERATIVE
     Route: 065
     Dates: start: 20120112
  3. PENTASA [Concomitant]
     Indication: COLITIS ULCERATIVE
     Dosage: FOR YEARS
     Route: 065

REACTIONS (9)
  - Cerebrovascular accident [Recovering/Resolving]
  - Diarrhoea [Recovered/Resolved]
  - Quality of life decreased [Recovering/Resolving]
  - Weight decreased [Recovering/Resolving]
  - Myocardial infarction [Unknown]
  - Sepsis [Recovered/Resolved]
  - Listeriosis [Not Recovered/Not Resolved]
  - Colitis ulcerative [Recovering/Resolving]
  - Drug ineffective [Unknown]
